FAERS Safety Report 4413965-9 (Version None)
Quarter: 2004Q3

REPORT INFORMATION
  Report Type: 
  Country: None (occurrence: None)
  Receive Date: 20040802
  Receipt Date: 20030403
  Transmission Date: 20050211
  Serious: Yes (Other)
  Sender: FDA-Public Use
  Company Number: PANC00302000420

PATIENT
  Age: 30 Year
  Sex: Female
  Weight: 45 kg

DRUGS (16)
  1. CREON [Suspect]
     Indication: PANCREATITIS CHRONIC
     Dosage: 3 G DAILY PO
     Route: 048
     Dates: start: 19970127, end: 19970607
  2. CREON [Suspect]
     Indication: PANCREATITIS CHRONIC
     Dosage: 3 G DAILY PO
     Route: 048
     Dates: start: 19970614, end: 19980125
  3. DEPAKENE [Concomitant]
  4. TOFRANIL [Concomitant]
  5. DEPAS (ETIZOLAM) [Concomitant]
  6. AMOBAN (ZOPICLONE) [Concomitant]
  7. MEILAX (ETHYL LOFLAZEPATE) [Concomitant]
  8. ALOSENN [Concomitant]
  9. LENDORM [Concomitant]
  10. GASCON (DIMETICONE) [Concomitant]
  11. ZANTAC [Concomitant]
  12. OMEPRAZOLE [Concomitant]
  13. PRIMPERAN TAB [Concomitant]
  14. ISOTONIC SODIUM CHLORIDE SOLUTION [Concomitant]
  15. SOLITA-T NO.3 [Concomitant]
  16. DEPAKENE [Concomitant]

REACTIONS (5)
  - EPISTAXIS [None]
  - FACE INJURY [None]
  - HAEMATOCRIT DECREASED [None]
  - HAEMOGLOBIN DECREASED [None]
  - RED BLOOD CELL COUNT DECREASED [None]
